FAERS Safety Report 25442643 (Version 1)
Quarter: 2025Q2

REPORT INFORMATION
  Report Type: Spontaneous
  Country: HR (occurrence: HR)
  Receive Date: 20250617
  Receipt Date: 20250617
  Transmission Date: 20250716
  Serious: Yes (Hospitalization, Other)
  Sender: BRISTOL-MYERS SQUIBB COMPANY
  Company Number: HR-009507513-2294029

PATIENT
  Sex: Female

DRUGS (2)
  1. PACLITAXEL [Suspect]
     Active Substance: PACLITAXEL
     Indication: Triple negative breast cancer
     Dates: start: 202409
  2. PEMBROLIZUMAB [Suspect]
     Active Substance: PEMBROLIZUMAB
     Indication: Triple negative breast cancer
     Dates: start: 202409

REACTIONS (11)
  - Skin toxicity [Unknown]
  - Alopecia [Unknown]
  - Constipation [Unknown]
  - Fatigue [Unknown]
  - Vitiligo [Unknown]
  - Pain in extremity [Unknown]
  - Immune-mediated hypothyroidism [Unknown]
  - Nausea [Unknown]
  - Immune-mediated myositis [Unknown]
  - Pemphigoid [Unknown]
  - Muscular weakness [Unknown]
